FAERS Safety Report 6591426-9 (Version None)
Quarter: 2010Q1

REPORT INFORMATION
  Report Type: 
  Country: None (occurrence: None)
  Receive Date: 20100219
  Receipt Date: 20100209
  Transmission Date: 20100710
  Serious: Yes (Other)
  Sender: FDA-Public Use
  Company Number: NL-AMGEN-US382586

PATIENT
  Age: 65 Year
  Sex: Male
  Weight: 95 kg

DRUGS (1)
  1. ENBREL [Suspect]
     Indication: PSORIASIS
     Route: 058
     Dates: start: 20020829, end: 20100114

REACTIONS (1)
  - PERIPHERAL SENSORY NEUROPATHY [None]
